FAERS Safety Report 13302637 (Version 1)
Quarter: 2017Q1

REPORT INFORMATION
  Report Type: Spontaneous
  Country: US (occurrence: US)
  Receive Date: 20170307
  Receipt Date: 20170307
  Transmission Date: 20170428
  Serious: No
  Sender: FDA-Public Use
  Company Number: US-TAKEDA-2017TUS004468

PATIENT
  Age: 42 Year
  Sex: Female
  Weight: 52.15 kg

DRUGS (5)
  1. PHENERGAN [Concomitant]
     Active Substance: PROMETHAZINE HYDROCHLORIDE
     Indication: NAUSEA
     Dosage: UNK
     Route: 048
  2. ENTYVIO [Suspect]
     Active Substance: VEDOLIZUMAB
     Indication: CROHN^S DISEASE
     Dosage: UNK
     Route: 042
  3. POTASSIUM [Concomitant]
     Active Substance: POTASSIUM
     Dosage: UNK
  4. VITAMIN B12 [Concomitant]
     Active Substance: CYANOCOBALAMIN
     Dosage: UNK
     Route: 050
  5. TEMAZEPAM. [Concomitant]
     Active Substance: TEMAZEPAM
     Indication: SLEEP DISORDER
     Dosage: UNK

REACTIONS (6)
  - Weight decreased [Not Recovered/Not Resolved]
  - Decreased appetite [Recovered/Resolved]
  - Diarrhoea [Recovered/Resolved]
  - Pyrexia [Recovered/Resolved]
  - Pain [Recovered/Resolved]
  - Intestinal stenosis [Recovered/Resolved]
